FAERS Safety Report 8761050 (Version 2)
Quarter: 2013Q1

REPORT INFORMATION
  Report Type: Report from Study
  Country: FR (occurrence: FR)
  Receive Date: 20120830
  Receipt Date: 20130204
  Transmission Date: 20140127
  Serious: Yes (Other)
  Sender: FDA-Public Use
  Company Number: FR-VERTEX PHARMACEUTICAL INC.-2012-020264

PATIENT
  Age: 56 Year
  Sex: Female
  Weight: 52 kg

DRUGS (9)
  1. VX-950 (TELAPREVIR) [Suspect]
     Indication: HEPATITIS C
     Dosage: 750 MG, TID
     Route: 048
     Dates: start: 20110907, end: 20111130
  2. PEGASYS [Suspect]
     Indication: HEPATITIS C
     Dosage: DOSAGE FORM: UNSPECIFIED, 180 UNSPECIFIED UNITS A WEEK
     Route: 065
     Dates: start: 20110809
  3. COPEGUS [Suspect]
     Indication: HEPATITIS C
     Dosage: DOSAGE FORM: UNSPECIFIED, 1000 UNSPECIFIED UNITS A DAY
     Route: 065
     Dates: start: 20110809
  4. NORVIR [Concomitant]
     Indication: HIV INFECTION
     Dosage: DOSAGE FORM: UNSPECIFIED, 100 UNSPECIFIED UNITS A DAY
     Route: 065
     Dates: start: 20101215
  5. TRUVADA [Concomitant]
     Indication: HIV INFECTION
     Dosage: DOSAGE FORM: UNSPECIFIED
     Route: 065
     Dates: start: 20101215
  6. REYATAZ [Concomitant]
     Indication: HIV INFECTION
     Dosage: DOSAGE FORM: UNSPECIFIED, 300 UNSPECIFIED UNITS A DAY
     Route: 065
     Dates: start: 20101215
  7. GAVISCON NOS [Concomitant]
     Dosage: 1 DF, TID
     Route: 065
     Dates: start: 20110907
  8. OMEPRAZOLE [Concomitant]
     Dosage: 20 MG, QD
     Dates: start: 20110921
  9. DEROXAT [Concomitant]
     Indication: ANXIETY
     Dosage: UNK
     Dates: start: 20111102

REACTIONS (1)
  - Neutropenia [Recovered/Resolved]
